FAERS Safety Report 11752361 (Version 3)
Quarter: 2015Q4

REPORT INFORMATION
  Report Type: Spontaneous
  Country: US (occurrence: US)
  Receive Date: 20151118
  Receipt Date: 20151221
  Transmission Date: 20160304
  Serious: Yes (Death, Hospitalization)
  Sender: FDA-Public Use
  Company Number: US-CONCORDIA PHARMACEUTICALS INC.-CO-LA-US-2015-012

PATIENT
  Age: 51 Year
  Sex: Female
  Weight: 118.8 kg

DRUGS (22)
  1. HEPARIN [Concomitant]
     Active Substance: HEPARIN SODIUM
     Indication: PRODUCT USED FOR UNKNOWN INDICATION
     Route: 058
  2. DEXTROSE. [Concomitant]
     Active Substance: DEXTROSE
     Indication: PRODUCT USED FOR UNKNOWN INDICATION
     Route: 048
  3. REMODULIN [Suspect]
     Active Substance: TREPROSTINIL
     Indication: PULMONARY ARTERIAL HYPERTENSION
     Route: 058
  4. REMODULIN [Suspect]
     Active Substance: TREPROSTINIL
     Indication: PULMONARY ARTERIAL HYPERTENSION
     Route: 058
     Dates: start: 20150313
  5. ATORVASTATIN [Concomitant]
     Active Substance: ATORVASTATIN
     Indication: PRODUCT USED FOR UNKNOWN INDICATION
     Route: 048
  6. FLUTICASONE W/SALMETEROL [Concomitant]
     Active Substance: FLUTICASONE PROPIONATE\SALMETEROL XINAFOATE
     Indication: PRODUCT USED FOR UNKNOWN INDICATION
  7. DIGOXIN. [Suspect]
     Active Substance: DIGOXIN
     Indication: PULMONARY ARTERIAL HYPERTENSION
     Route: 048
     Dates: start: 20150310, end: 20150328
  8. REMODULIN [Suspect]
     Active Substance: TREPROSTINIL
     Indication: PULMONARY ARTERIAL HYPERTENSION
     Route: 058
     Dates: start: 20150310
  9. GLUCAGON. [Concomitant]
     Active Substance: GLUCAGON
     Indication: PRODUCT USED FOR UNKNOWN INDICATION
     Dosage: 1 MG/1 ML AS NEEDED
     Route: 030
  10. REMODULIN [Suspect]
     Active Substance: TREPROSTINIL
     Indication: PULMONARY ARTERIAL HYPERTENSION
     Route: 058
  11. ALBUTEROL SULFATE AND IPRATROPIUM BROMIDE [Concomitant]
     Indication: PRODUCT USED FOR UNKNOWN INDICATION
  12. MAGNESIUM OXIDE. [Concomitant]
     Active Substance: MAGNESIUM OXIDE
     Indication: PRODUCT USED FOR UNKNOWN INDICATION
     Route: 065
  13. ASPIRIN. [Concomitant]
     Active Substance: ASPIRIN
     Indication: PRODUCT USED FOR UNKNOWN INDICATION
     Route: 048
  14. NYSTATIN. [Concomitant]
     Active Substance: NYSTATIN
     Indication: PRODUCT USED FOR UNKNOWN INDICATION
     Route: 048
  15. SPIRONOLACTONE. [Concomitant]
     Active Substance: SPIRONOLACTONE
     Indication: PRODUCT USED FOR UNKNOWN INDICATION
     Route: 048
  16. DEXTROSE. [Concomitant]
     Active Substance: DEXTROSE
     Indication: PRODUCT USED FOR UNKNOWN INDICATION
     Dosage: 12.5 GM/25 ML AS NEEDED
  17. REMODULIN [Suspect]
     Active Substance: TREPROSTINIL
     Indication: PULMONARY ARTERIAL HYPERTENSION
     Route: 058
     Dates: start: 20150218, end: 20150621
  18. REVATIO [Concomitant]
     Active Substance: SILDENAFIL CITRATE
     Indication: PRODUCT USED FOR UNKNOWN INDICATION
     Route: 065
  19. LISPRO INSULIN [Concomitant]
     Active Substance: INSULIN LISPRO
     Indication: PRODUCT USED FOR UNKNOWN INDICATION
     Route: 058
  20. POTASSIUM-SODIUM PHOSPHATE [Concomitant]
     Indication: PRODUCT USED FOR UNKNOWN INDICATION
     Route: 048
  21. NIMBEX [Suspect]
     Active Substance: CISATRACURIUM BESYLATE
     Indication: PARALYSIS
     Route: 065
     Dates: start: 20150618
  22. ACETAMINOPHEN. [Concomitant]
     Active Substance: ACETAMINOPHEN
     Indication: PRODUCT USED FOR UNKNOWN INDICATION
     Route: 048

REACTIONS (34)
  - Acute kidney injury [Recovered/Resolved]
  - Hypovolaemia [Recovered/Resolved]
  - Cardiac arrest [Unknown]
  - Pulmonary veno-occlusive disease [Unknown]
  - Blood pressure increased [Recovered/Resolved]
  - Cardiomegaly [Unknown]
  - Pollakiuria [Unknown]
  - Ventricular tachycardia [Unknown]
  - Pneumonia aspiration [Unknown]
  - Asthenia [Unknown]
  - Tachycardia [Unknown]
  - Heart rate increased [Unknown]
  - Hyponatraemia [Unknown]
  - Sinus tachycardia [Unknown]
  - Pulmonary oedema [Unknown]
  - Pneumonia [Unknown]
  - Hypotension [Unknown]
  - Pulmonary congestion [Unknown]
  - Death [None]
  - Dyspnoea [Not Recovered/Not Resolved]
  - Toxicity to various agents [Recovered/Resolved]
  - Respiratory failure [Unknown]
  - Thrombocytopenia [Unknown]
  - Fluid overload [Unknown]
  - Liver disorder [Unknown]
  - Haemorrhage [Unknown]
  - Disseminated intravascular coagulation [Unknown]
  - Oliguria [Unknown]
  - Electrocardiogram abnormal [Unknown]
  - Cardiogenic shock [Unknown]
  - Asthenia [Unknown]
  - Pulmonary arterial hypertension [Unknown]
  - Oedema [Unknown]
  - Hypoxia [Unknown]

NARRATIVE: CASE EVENT DATE: 20140401
